FAERS Safety Report 5848348-8 (Version None)
Quarter: 2008Q3

REPORT INFORMATION
  Report Type: 
  Country: None (occurrence: None)
  Receive Date: 20080814
  Receipt Date: 20080729
  Transmission Date: 20090109
  Serious: Yes (Hospitalization)
  Sender: FDA-Public Use
  Company Number: 230034M08FRA

PATIENT
  Age: 39 Year
  Sex: Female
  Weight: 55 kg

DRUGS (4)
  1. REBIF [Suspect]
     Indication: MULTIPLE SCLEROSIS
     Dates: start: 20020101
  2. SPIFEN (IBUPROFEN) (IBUPROFEN) [Suspect]
     Indication: NASOPHARYNGITIS
  3. CLONAZEPAM [Concomitant]
  4. MOVICOL (NULYTELY) [Concomitant]

REACTIONS (6)
  - DIALYSIS [None]
  - DRUG INTERACTION [None]
  - EPISTAXIS [None]
  - HAEMOLYTIC URAEMIC SYNDROME [None]
  - HYPERTENSION [None]
  - MALAISE [None]
